FAERS Safety Report 9355675 (Version 1)
Quarter: 2013Q2

REPORT INFORMATION
  Report Type: Spontaneous
  Country: FR (occurrence: FR)
  Receive Date: 20130619
  Receipt Date: 20130619
  Transmission Date: 20140414
  Serious: Yes (Other)
  Sender: FDA-Public Use
  Company Number: FR-SANOFI-AVENTIS-2013SA059755

PATIENT
  Age: 75 Year
  Sex: Female

DRUGS (1)
  1. KETEK [Suspect]
     Indication: PRODUCT USED FOR UNKNOWN INDICATION
     Route: 048
     Dates: start: 20130605

REACTIONS (1)
  - Dyspnoea [Unknown]
